FAERS Safety Report 4570364-7 (Version None)
Quarter: 2005Q1

REPORT INFORMATION
  Report Type: 
  Country: None (occurrence: None)
  Receive Date: 20050204
  Receipt Date: 20050126
  Transmission Date: 20050727
  Serious: Yes (Hospitalization)
  Sender: FDA-Public Use
  Company Number: BE-JNJFOC-20041201139

PATIENT
  Age: 3 Year
  Sex: Male
  Weight: 12.2 kg

DRUGS (4)
  1. PROPULSID [Suspect]
     Route: 049
  2. PROPULSID [Suspect]
     Route: 049
  3. PROPULSID [Suspect]
     Route: 049
  4. PROPULSID [Suspect]
     Indication: GASTROOESOPHAGEAL REFLUX DISEASE
     Route: 049

REACTIONS (1)
  - FUNDOPLICATION [None]
